FAERS Safety Report 8786428 (Version 2)
Quarter: 2013Q4

REPORT INFORMATION
  Report Type: Spontaneous
  Country: FR (occurrence: FR)
  Receive Date: 20120914
  Receipt Date: 20131106
  Transmission Date: 20140711
  Serious: Yes (Hospitalization)
  Sender: FDA-Public Use
  Company Number: FR-009507513-1209FRA004012

PATIENT
  Age: 53 Year
  Sex: Female

DRUGS (2)
  1. TIMOPTOL [Suspect]
     Indication: GLAUCOMA
     Dosage: UNK
     Route: 047
  2. KLIOGEST (ESTRADIOL (+) NORETHINDRONE ACETATE) [Suspect]
     Route: 048

REACTIONS (1)
  - Cerebral vasoconstriction [Recovered/Resolved]
